FAERS Safety Report 9737281 (Version 1)
Quarter: 2013Q4

REPORT INFORMATION
  Report Type: Report from Study
  Country: US (occurrence: US)
  Receive Date: 20131206
  Receipt Date: 20131206
  Transmission Date: 20140711
  Serious: Yes (Hospitalization, Other)
  Sender: FDA-Public Use
  Company Number: US-ABBVIE-13P-163-1174656-00

PATIENT
  Age: 21 Year
  Sex: Male

DRUGS (7)
  1. HUMIRA [Suspect]
     Indication: CROHN^S DISEASE
     Dates: start: 201101
  2. HUMIRA [Suspect]
     Indication: CROHN^S DISEASE
     Dates: start: 201305
  3. TYLENOL [Concomitant]
     Indication: BACK PAIN
  4. TYLENOL [Concomitant]
     Indication: ARTHRITIS
  5. BALSALAZIDE DISODIUM [Concomitant]
     Indication: CROHN^S DISEASE
     Dosage: 6000 MG DAILY
  6. PENTASA [Concomitant]
     Indication: PRODUCT USED FOR UNKNOWN INDICATION
  7. METHOTREXATE [Concomitant]
     Indication: CROHN^S DISEASE

REACTIONS (4)
  - Intestinal obstruction [Not Recovered/Not Resolved]
  - Abdominal distension [Not Recovered/Not Resolved]
  - Abdominal pain [Not Recovered/Not Resolved]
  - Crohn^s disease [Recovering/Resolving]
